FAERS Safety Report 25587330 (Version 1)
Quarter: 2025Q3

REPORT INFORMATION
  Report Type: Spontaneous
  Country: US (occurrence: US)
  Receive Date: 20250721
  Receipt Date: 20250721
  Transmission Date: 20251020
  Serious: Yes (Other)
  Sender: PFIZER
  Company Number: US-MLMSERVICE-20250710-PI573324-00201-1

PATIENT
  Age: 36 Year
  Sex: Female

DRUGS (2)
  1. LIDOCAINE HYDROCHLORIDE [Suspect]
     Active Substance: LIDOCAINE HYDROCHLORIDE
     Indication: Sedative therapy
     Route: 055
  2. BENZOCAINE (BENZOCAINE) [Suspect]
     Active Substance: BENZOCAINE
     Indication: Sedative therapy

REACTIONS (2)
  - Methaemoglobinaemia [Recovering/Resolving]
  - Off label use [Unknown]
